FAERS Safety Report 10578871 (Version 2)
Quarter: 2014Q4

REPORT INFORMATION
  Report Type: Spontaneous
  Country: FR (occurrence: FR)
  Receive Date: 20141112
  Receipt Date: 20141210
  Transmission Date: 20150529
  Serious: Yes (Hospitalization)
  Sender: FDA-Public Use
  Company Number: FR-AMGEN-FRASP2014086039

PATIENT
  Age: 74 Year
  Sex: Male

DRUGS (8)
  1. PERMIXON [Suspect]
     Active Substance: SAW PALMETTO
     Indication: PROSTATITIS
     Dosage: 1 DF, BID
     Route: 048
  2. DEXAMETHASONE. [Suspect]
     Active Substance: DEXAMETHASONE
     Indication: PLASMA CELL MYELOMA
     Dosage: 20 MG, QWK
     Route: 048
     Dates: start: 20140422, end: 20141002
  3. ZELITREX [Suspect]
     Active Substance: VALACYCLOVIR HYDROCHLORIDE
     Indication: PROPHYLAXIS
     Dosage: 500 MG, QD
     Route: 048
  4. ARANESP [Suspect]
     Active Substance: DARBEPOETIN ALFA
     Indication: ANAEMIA
     Dosage: 150 MUG, QWK
     Route: 058
     Dates: start: 201201, end: 20141003
  5. PERMIXON [Suspect]
     Active Substance: SAW PALMETTO
     Indication: HYPERTONIA
  6. IMNOVID [Suspect]
     Active Substance: POMALIDOMIDE
     Indication: PLASMA CELL MYELOMA
     Dosage: 4 MG, (21 DAY/28)
     Route: 048
     Dates: start: 20140422, end: 20141006
  7. KARDEGIC [Suspect]
     Active Substance: ASPIRIN LYSINE
     Indication: PROPHYLAXIS
     Dosage: 75 MG, QD
     Route: 048
     Dates: start: 20140422, end: 20141004
  8. DIFFU K [Concomitant]
     Active Substance: POTASSIUM CHLORIDE
     Dosage: 1 DF, BID, MORNING AND EVENING

REACTIONS (2)
  - Rectal haemorrhage [Recovered/Resolved]
  - Colitis ischaemic [Not Recovered/Not Resolved]

NARRATIVE: CASE EVENT DATE: 20141004
